FAERS Safety Report 5756029-4 (Version None)
Quarter: 2008Q2

REPORT INFORMATION
  Report Type: 
  Country: None (occurrence: None)
  Receive Date: 20080602
  Receipt Date: 20080526
  Transmission Date: 20081010
  Serious: Yes (Other)
  Sender: FDA-Public Use
  Company Number: PHBS2006BR17865

PATIENT
  Age: 74 Year
  Sex: Female

DRUGS (7)
  1. VOLTAREN [Suspect]
     Indication: ARTHRALGIA
     Dosage: 75 MG, UNK
     Route: 030
     Dates: start: 20061001
  2. DIOVAN HCT [Concomitant]
     Indication: HYPERTENSION
     Dosage: 160 VALS - 12.5 HCTZ MG/DAY
     Route: 048
     Dates: start: 19960101
  3. ALDAZIDA [Concomitant]
     Indication: HYPERTENSION
     Dosage: 50 MG, Q48H
     Route: 048
  4. METFORMIN HCL [Concomitant]
     Indication: DIABETES MELLITUS
     Dosage: 1000 MG/DAY
     Route: 048
     Dates: start: 20061001
  5. DAONIL [Concomitant]
     Indication: DIABETES MELLITUS
     Dosage: 10 MG/DAY
     Route: 048
  6. VENLAFAXINE HCL [Concomitant]
     Indication: DEPRESSION
     Dosage: 75 MG/DAY
     Route: 048
  7. SIMVASTATIN [Concomitant]
     Indication: BLOOD CHOLESTEROL
     Dosage: 20 MG/DAY
     Route: 048
     Dates: start: 20060101

REACTIONS (9)
  - INJECTION SITE ABSCESS [None]
  - INJECTION SITE INDURATION [None]
  - INJECTION SITE IRRITATION [None]
  - INJECTION SITE NECROSIS [None]
  - INJECTION SITE PAIN [None]
  - INJECTION SITE VESICLES [None]
  - MUSCLE GRAFT [None]
  - PAIN IN EXTREMITY [None]
  - SURGERY [None]
